FAERS Safety Report 4941172-X (Version None)
Quarter: 2006Q1

REPORT INFORMATION
  Report Type: 
  Country: None (occurrence: None)
  Receive Date: 20060308
  Receipt Date: 20060222
  Transmission Date: 20060701
  Serious: Yes (Death, Hospitalization)
  Sender: FDA-Public Use
  Company Number: HQWYE991124FEB06

PATIENT
  Age: 71 Year
  Sex: Female

DRUGS (7)
  1. CORDARONE [Suspect]
     Indication: ILL-DEFINED DISORDER
     Dosage: 200 MG 5X PER 1 WK ORAL
     Route: 048
     Dates: start: 20051004
  2. DURAGESIC-100 [Suspect]
     Indication: DIABETIC NEUROPATHY
     Dosage: 50 UG 1X PER 2 WK ORAL
     Route: 048
     Dates: start: 20051209, end: 20060109
  3. DURAGESIC-100 [Suspect]
     Indication: NEURALGIA
     Dosage: 50 UG 1X PER 2 WK ORAL
     Route: 048
     Dates: start: 20051209, end: 20060109
  4. DURAGESIC-100 [Suspect]
     Indication: PERIPHERAL ISCHAEMIA
     Dosage: 50 UG 1X PER 2 WK ORAL
     Route: 048
     Dates: start: 20051209, end: 20060109
  5. FLUVOXAMINE MALEATE [Suspect]
     Indication: DEPRESSION
     Dosage: 50 MG 1X PER 1 DAY ORAL
     Route: 048
     Dates: start: 20051121, end: 20060109
  6. PREVISCAN (FLUINDIONE) [Suspect]
     Indication: ILL-DEFINED DISORDER
     Dosage: 20 MG DOSE   ORAL
     Route: 048
     Dates: end: 20060109
  7. TAHOR (ATORVASTATIN) [Suspect]
     Indication: DYSLIPIDAEMIA
     Dosage: 1 TABLET 1X PER 1 DAY ORAL
     Route: 048
     Dates: start: 20051209, end: 20060113

REACTIONS (6)
  - DISORIENTATION [None]
  - DRUG INTERACTION [None]
  - HALLUCINATION [None]
  - INTERNATIONAL NORMALISED RATIO INCREASED [None]
  - INTESTINAL ISCHAEMIA [None]
  - PROTHROMBIN TIME RATIO DECREASED [None]
